FAERS Safety Report 5432314-0 (Version None)
Quarter: 2007Q3

REPORT INFORMATION
  Report Type: 
  Country: None (occurrence: None)
  Receive Date: 20070831
  Receipt Date: 20070824
  Transmission Date: 20080115
  Serious: Yes (Other)
  Sender: FDA-Public Use
  Company Number: AUWYE231228AUG07

PATIENT
  Sex: Female
  Weight: 75 kg

DRUGS (3)
  1. EFFEXOR XR [Suspect]
     Indication: DEPRESSION
     Route: 048
     Dates: start: 20000101, end: 20040101
  2. EFFEXOR XR [Suspect]
     Route: 048
  3. SERETIDE [Concomitant]
     Indication: ASTHMA
     Dosage: 1 DOSE EVERY 2 TO 3 DAYS
     Route: 055
     Dates: start: 20020101

REACTIONS (3)
  - ABORTION SPONTANEOUS [None]
  - DRUG EXPOSURE DURING PREGNANCY [None]
  - ECTOPIC PREGNANCY [None]
